FAERS Safety Report 18488980 (Version 1)
Quarter: 2020Q4

REPORT INFORMATION
  Report Type: Other
  Country: BE (occurrence: BE)
  Receive Date: 20201110
  Receipt Date: 20201110
  Transmission Date: 20210114
  Serious: Yes (Life-Threatening)
  Sender: FDA-Public Use
  Company Number: BE-NOSTRUM LABORATORIES, INC.-2095783

PATIENT
  Age: 65 Year
  Sex: Female

DRUGS (1)
  1. METHADONE HYDROCHLORIDE. [Suspect]
     Active Substance: METHADONE HYDROCHLORIDE
     Indication: PAIN
     Route: 048

REACTIONS (3)
  - Medication error [Recovered/Resolved]
  - Accidental overdose [Recovered/Resolved]
  - Toxic leukoencephalopathy [Recovered/Resolved]
